FAERS Safety Report 8019830-2 (Version None)
Quarter: 2012Q1

REPORT INFORMATION
  Report Type: 
  Country: None (occurrence: None)
  Receive Date: 20120103
  Receipt Date: 20111230
  Transmission Date: 20120608
  Serious: Yes (Death)
  Sender: FDA-Public Use
  Company Number: CA-ELI_LILLY_AND_COMPANY-CA201112007793

PATIENT

DRUGS (1)
  1. ADCIRCA [Suspect]

REACTIONS (1)
  - DEATH [None]
